FAERS Safety Report 4786173-X (Version None)
Quarter: 2005Q3

REPORT INFORMATION
  Report Type: 
  Country: None (occurrence: None)
  Receive Date: 20050929
  Receipt Date: 20050929
  Transmission Date: 20060218
  Serious: Yes (Hospitalization)
  Sender: FDA-Public Use
  Company Number: None

PATIENT
  Age: 56 Year
  Sex: Female
  Weight: 64.4108 kg

DRUGS (7)
  1. NEXIUM [Suspect]
     Indication: ABDOMINAL PAIN UPPER
     Dosage: 40 MG PO QD
     Route: 048
  2. NEXIUM [Suspect]
     Indication: GASTROOESOPHAGEAL REFLUX DISEASE
     Dosage: 40 MG PO QD
     Route: 048
  3. CELEBREX [Concomitant]
  4. FOSAMAX [Concomitant]
  5. FENHART [Concomitant]
  6. ALLEGRA-D [Concomitant]
  7. TYLENOL (CAPLET) [Concomitant]

REACTIONS (5)
  - EPISTAXIS [None]
  - HEADACHE [None]
  - MOUTH HAEMORRHAGE [None]
  - ORAL SOFT TISSUE DISORDER [None]
  - RHINALGIA [None]
